FAERS Safety Report 4574527-6 (Version None)
Quarter: 2005Q1

REPORT INFORMATION
  Report Type: 
  Country: None (occurrence: None)
  Receive Date: 20050208
  Receipt Date: 20030923
  Transmission Date: 20050727
  Serious: No
  Sender: FDA-Public Use
  Company Number: US-GLAXOSMITHKLINE-A0428515A

PATIENT

DRUGS (1)
  1. PAXIL [Suspect]
     Indication: ILL-DEFINED DISORDER
     Route: 048
     Dates: start: 19990701, end: 20010718

REACTIONS (6)
  - CONSTIPATION [None]
  - DRUG WITHDRAWAL SYNDROME [None]
  - HYPOAESTHESIA [None]
  - NIGHTMARE [None]
  - PARAESTHESIA [None]
  - TINNITUS [None]
